FAERS Safety Report 6879527-9 (Version None)
Quarter: 2010Q3

REPORT INFORMATION
  Report Type: 
  Country: None (occurrence: None)
  Receive Date: 20100728
  Receipt Date: 20100716
  Transmission Date: 20110219
  Serious: Yes (Hospitalization)
  Sender: FDA-Public Use
  Company Number: DE-NAPPMUNDI-DEU-2010-0006402

PATIENT
  Age: 66 Year
  Sex: Male
  Weight: 64 kg

DRUGS (14)
  1. SEVREDOL 10 MG [Suspect]
     Indication: PAIN
     Dosage: 10 MG, BID
     Route: 048
     Dates: start: 20071010
  2. DURAGESIC-100 [Suspect]
     Indication: PAIN
     Dosage: 50 MCG, Q3D
     Route: 003
     Dates: start: 20071010, end: 20071018
  3. PANTOZOL                           /01263202/ [Concomitant]
  4. ESPUMISAN                          /00159501/ [Concomitant]
  5. MCP BETA [Concomitant]
  6. MOVICOL                            /01625101/ [Concomitant]
  7. KALINOR                            /01478101/ [Concomitant]
  8. KONAKION [Concomitant]
  9. FURORESE                           /00032601/ [Concomitant]
  10. ALDACTONE [Concomitant]
  11. PROPRANOLOL                        /00030002/ [Concomitant]
  12. DURAGESIC-100 [Concomitant]
  13. NOVALGIN                           /06276704/ [Concomitant]
  14. CIPROBAY                           /00697202/ [Concomitant]

REACTIONS (1)
  - FAECALOMA [None]
